FAERS Safety Report 15130033 (Version 1)
Quarter: 2018Q3

REPORT INFORMATION
  Report Type: Spontaneous
  Country: FR (occurrence: FR)
  Receive Date: 20180711
  Receipt Date: 20180711
  Transmission Date: 20181010
  Serious: Yes (Other)
  Sender: FDA-Public Use
  Company Number: FR-PFIZER INC-2018275219

PATIENT
  Age: 39 Year
  Sex: Female

DRUGS (6)
  1. HUMIRA [Concomitant]
     Active Substance: ADALIMUMAB
     Indication: BIRDSHOT CHORIORETINOPATHY
     Dosage: UNK
  2. MYCOPHENOLATE MOFETIL. [Concomitant]
     Active Substance: MYCOPHENOLATE MOFETIL
     Indication: BIRDSHOT CHORIORETINOPATHY
     Dosage: 2 G, DAILY
  3. INFLIXIMAB [Concomitant]
     Active Substance: INFLIXIMAB
     Dosage: UNK
  4. INTERFERON ALFA 2A [Concomitant]
     Active Substance: INTERFERON ALFA-2A
     Indication: BIRDSHOT CHORIORETINOPATHY
     Dosage: UNK
  5. METHYLPREDNISOLONE. [Suspect]
     Active Substance: METHYLPREDNISOLONE
     Indication: BIRDSHOT CHORIORETINOPATHY
     Dosage: 500 MG, DAILY FOR 3 CONSECUTIVE DAYS
  6. PREDNISONE. [Suspect]
     Active Substance: PREDNISONE
     Indication: BIRDSHOT CHORIORETINOPATHY
     Dosage: 1 MG/KG/DAY

REACTIONS (1)
  - Drug dependence [Unknown]
